FAERS Safety Report 7236307-2 (Version None)
Quarter: 2011Q1

REPORT INFORMATION
  Report Type: 
  Country: None (occurrence: None)
  Receive Date: 20110120
  Receipt Date: 20110107
  Transmission Date: 20110831
  Serious: Yes (Hospitalization)
  Sender: FDA-Public Use
  Company Number: US-ELI_LILLY_AND_COMPANY-US201101002038

PATIENT
  Sex: Female

DRUGS (3)
  1. ANTIDEPRESSANTS [Concomitant]
  2. PRISTIQ [Concomitant]
  3. CYMBALTA [Suspect]
     Indication: MAJOR DEPRESSION
     Dosage: UNK, UNKNOWN

REACTIONS (2)
  - GASTROSTOMY TUBE INSERTION [None]
  - PNEUMONIA [None]
